FAERS Safety Report 12318094 (Version 2)
Quarter: 2016Q2

REPORT INFORMATION
  Report Type: Spontaneous
  Country: US (occurrence: US)
  Receive Date: 20160429
  Receipt Date: 20160606
  Transmission Date: 20160815
  Serious: No
  Sender: FDA-Public Use
  Company Number: US-LUNDBECK-DKLU2012777

PATIENT
  Sex: Female

DRUGS (4)
  1. FLUDROCORTISONE [Interacting]
     Active Substance: FLUDROCORTISONE
     Indication: PRODUCT USED FOR UNKNOWN INDICATION
     Route: 065
  2. BUPROPION. [Interacting]
     Active Substance: BUPROPION
     Indication: PRODUCT USED FOR UNKNOWN INDICATION
     Route: 065
  3. NORTHERA [Suspect]
     Active Substance: DROXIDOPA
     Indication: PRODUCT USED FOR UNKNOWN INDICATION
     Dosage: ON SCHEDULE A
     Route: 065
     Dates: start: 20160416
  4. NORTHERA [Interacting]
     Active Substance: DROXIDOPA
     Route: 065
     Dates: end: 20160425

REACTIONS (2)
  - Drug interaction [Unknown]
  - Abdominal pain [Unknown]
